FAERS Safety Report 17987572 (Version 1)
Quarter: 2020Q3

REPORT INFORMATION
  Report Type: Spontaneous
  Country: FR (occurrence: FR)
  Receive Date: 20200707
  Receipt Date: 20200707
  Transmission Date: 20201103
  Serious: Yes (Hospitalization)
  Sender: FDA-Public Use
  Company Number: FR-TEVA-2020-FR-1796335

PATIENT
  Age: 38 Year
  Sex: Female

DRUGS (4)
  1. METHADONE [Suspect]
     Active Substance: METHADONE HYDROCHLORIDE
     Indication: INTENTIONAL PRODUCT MISUSE
     Dosage: QUANTITY CONSUMED NOT KNOWN
     Route: 048
     Dates: start: 2016
  2. ALPRAZOLAM. [Suspect]
     Active Substance: ALPRAZOLAM
     Indication: INTENTIONAL PRODUCT MISUSE
     Dosage: QUANTITY CONSUMED NOT KNOWN
     Route: 048
     Dates: start: 2017
  3. CHLORHYDRATE DE MIANSERINE [Suspect]
     Active Substance: MIANSERIN HYDROCHLORIDE
     Indication: INTENTIONAL PRODUCT MISUSE
     Dosage: QUANTITY CONSUMED NOT KNOWN
     Route: 048
     Dates: start: 202004
  4. COCAINE [Suspect]
     Active Substance: COCAINE
     Indication: DRUG DEPENDENCE
     Dosage: QUANTITY CONSUMED NOT KNOWN
     Route: 042
     Dates: start: 2010

REACTIONS (4)
  - Miosis [Recovered/Resolved]
  - Altered state of consciousness [Recovered/Resolved]
  - Housebound [Unknown]
  - Drug abuse [Unknown]

NARRATIVE: CASE EVENT DATE: 20200317
